FAERS Safety Report 17747743 (Version 2)
Quarter: 2021Q2

REPORT INFORMATION
  Report Type: Spontaneous
  Country: US (occurrence: US)
  Receive Date: 20200505
  Receipt Date: 20210505
  Transmission Date: 20210716
  Serious: No
  Sender: FDA-Public Use
  Company Number: US-ROCHE-2559734

PATIENT
  Age: 76 Year
  Sex: Male

DRUGS (3)
  1. ESBRIET [Suspect]
     Active Substance: PIRFENIDONE
     Indication: INTERSTITIAL LUNG DISEASE
     Route: 048
     Dates: start: 201912
  2. ESBRIET [Suspect]
     Active Substance: PIRFENIDONE
     Indication: IDIOPATHIC PULMONARY FIBROSIS
     Route: 048
     Dates: start: 20191217
  3. ESBRIET [Suspect]
     Active Substance: PIRFENIDONE
     Indication: LUNG DISORDER

REACTIONS (10)
  - Vomiting [Unknown]
  - Ageusia [Recovering/Resolving]
  - Abdominal pain upper [Unknown]
  - Taste disorder [Unknown]
  - Decreased appetite [Recovering/Resolving]
  - Anosmia [Recovering/Resolving]
  - Weight decreased [Unknown]
  - Diarrhoea [Unknown]
  - Parosmia [Unknown]
  - Nausea [Unknown]

NARRATIVE: CASE EVENT DATE: 202001
